FAERS Safety Report 11057140 (Version 3)
Quarter: 2015Q2

REPORT INFORMATION
  Report Type: Spontaneous
  Country: US (occurrence: US)
  Receive Date: 20150422
  Receipt Date: 20150618
  Transmission Date: 20150821
  Serious: Yes (Hospitalization, Disabling, Other)
  Sender: FDA-Public Use
  Company Number: US-B.I. PHARMACEUTICALS,INC./RIDGEFIELD-2015-BI-20524BP

PATIENT
  Age: 73 Year
  Sex: Female
  Weight: 98 kg

DRUGS (5)
  1. LEVEMIR/NOVOLOG [Concomitant]
     Indication: DIABETES MELLITUS
     Dosage: DOSE PER APP: 10 UNITS/755
     Route: 058
     Dates: start: 20150410
  2. TRADJENTA [Suspect]
     Active Substance: LINAGLIPTIN
     Indication: TYPE 2 DIABETES MELLITUS
     Dosage: 5 MG
     Route: 048
     Dates: start: 20130214, end: 20150410
  3. QUINAPRIL [Concomitant]
     Active Substance: QUINAPRIL\QUINAPRIL HYDROCHLORIDE
     Indication: HYPERTENSION
     Route: 048
     Dates: start: 2012
  4. GLYBEN/METFORMIN [Concomitant]
     Indication: DIABETES MELLITUS
     Dosage: DOSE PER APP: 5/500
     Route: 048
     Dates: start: 2012
  5. EVISTA [Concomitant]
     Active Substance: RALOXIFENE HYDROCHLORIDE
     Indication: OSTEOPOROSIS
     Dosage: 60 MG
     Route: 048
     Dates: start: 2012

REACTIONS (2)
  - Pancreatic carcinoma [Not Recovered/Not Resolved]
  - Liver function test abnormal [Not Recovered/Not Resolved]

NARRATIVE: CASE EVENT DATE: 201504
